FAERS Safety Report 12827796 (Version 2)
Quarter: 2017Q1

REPORT INFORMATION
  Report Type: Spontaneous
  Country: US (occurrence: US)
  Receive Date: 20161007
  Receipt Date: 20170202
  Transmission Date: 20170428
  Serious: Yes (Hospitalization, Other)
  Sender: FDA-Public Use
  Company Number: US-BAYER-2016-192992

PATIENT
  Age: 60 Year
  Sex: Male

DRUGS (18)
  1. AMOXICILLIN. [Concomitant]
     Active Substance: AMOXICILLIN
     Indication: ANTIBIOTIC THERAPY
     Dosage: 500 MG, 4 TABLETS 1 HR ANTIBIOTIC
  2. SULFAMETHOXAZOLE/TRIMETHOPRIM [Concomitant]
     Active Substance: SULFAMETHOXAZOLE\TRIMETHOPRIM
     Indication: ANTIBIOTIC THERAPY
     Dosage: 80 MG, UNK
  3. MYCOPHENOLATE SODIUM [Concomitant]
     Active Substance: MYCOPHENOLATE SODIUM
     Indication: MULTIPLE ORGAN TRANSPLANT REJECTION
     Dosage: 150 MG, 3 IN AM ONE AND A HALF AT NIGHT
  4. BAYER LOW DOSE [Concomitant]
     Active Substance: ASPIRIN
     Indication: PAIN
     Dosage: 1 DF, QD
  5. BUMETANIDE. [Concomitant]
     Active Substance: BUMETANIDE
     Indication: HYPERTENSION
     Dosage: 2 MG, QD
  6. MAGNESIUM [Concomitant]
     Active Substance: MAGNESIUM
     Indication: MAGNESIUM DEFICIENCY
     Dosage: 250 MG, BID
  7. LACTOBACILLUS ACID [Concomitant]
     Dosage: UNK
  8. ANDROGEL [Concomitant]
     Active Substance: TESTOSTERONE
     Dosage: UNK
  9. AVELOX [Suspect]
     Active Substance: MOXIFLOXACIN HYDROCHLORIDE
     Dosage: UNK
  10. PANTOPRAZOLE SODIUM. [Concomitant]
     Active Substance: PANTOPRAZOLE SODIUM
     Indication: GASTRIC PH DECREASED
     Dosage: 40 MG, QD
  11. OXYCODONE HYDROCHLORIDE. [Concomitant]
     Active Substance: OXYCODONE HYDROCHLORIDE
     Indication: PAIN
  12. CIPRO [Suspect]
     Active Substance: CIPROFLOXACIN HYDROCHLORIDE
     Dosage: UNK
  13. LEVAQUIN [Suspect]
     Active Substance: LEVOFLOXACIN
     Dosage: UNK
  14. DOCUSATE SODIUM. [Concomitant]
     Active Substance: DOCUSATE SODIUM
     Indication: CONSTIPATION PROPHYLAXIS
     Dosage: 2 MG, QD
  15. TACROLIMUS. [Concomitant]
     Active Substance: TACROLIMUS
     Indication: TRANSPLANT REJECTION
     Dosage: 3 MG, BID
  16. VITAMIN B [Concomitant]
     Active Substance: VITAMIN B
     Indication: VITAMIN B COMPLEX DEFICIENCY
     Dosage: UNK
  17. MIDODRINE HCL [Concomitant]
     Active Substance: MIDODRINE HYDROCHLORIDE
     Indication: HYPOTENSION
     Dosage: 10 MG, TID
  18. GABAPENTIN. [Concomitant]
     Active Substance: GABAPENTIN
     Indication: NEURALGIA
     Dosage: 100 MG, QD

REACTIONS (4)
  - Neuropathy peripheral [Not Recovered/Not Resolved]
  - Peripheral nerve injury [Not Recovered/Not Resolved]
  - Pain [None]
  - Physical disability [None]

NARRATIVE: CASE EVENT DATE: 2013
